FAERS Safety Report 4729116-7 (Version None)
Quarter: 2005Q3

REPORT INFORMATION
  Report Type: 
  Country: None (occurrence: None)
  Receive Date: 20050729
  Receipt Date: 20040414
  Transmission Date: 20060218
  Serious: No
  Sender: FDA-Public Use
  Company Number: US-GLAXOSMITHKLINE-A0507158A

PATIENT
  Age: 55 Year
  Sex: Female
  Weight: 72.7 kg

DRUGS (4)
  1. IMITREX [Suspect]
     Indication: MIGRAINE
     Dosage: 250MG PER DAY
     Route: 048
  2. MIRALAX [Concomitant]
  3. PROZAC [Concomitant]
  4. XANAX [Concomitant]

REACTIONS (2)
  - DRUG ADMINISTRATION ERROR [None]
  - NO ADVERSE EFFECT [None]
